FAERS Safety Report 10769564 (Version 1)
Quarter: 2015Q1

REPORT INFORMATION
  Report Type: Spontaneous
  Country: DE (occurrence: DE)
  Receive Date: 20150206
  Receipt Date: 20150206
  Transmission Date: 20150721
  Serious: Yes (Hospitalization, Other)
  Sender: FDA-Public Use
  Company Number: DE-UCBSA-2015002812

PATIENT
  Age: 48 Year
  Sex: Male

DRUGS (1)
  1. CIMZIA [Suspect]
     Active Substance: CERTOLIZUMAB PEGOL
     Indication: PSORIATIC ARTHROPATHY
     Dosage: 200 MG MILLGRAMS
     Route: 058
     Dates: start: 2014

REACTIONS (5)
  - Interstitial lung disease [Recovered/Resolved with Sequelae]
  - Body temperature increased [Recovered/Resolved with Sequelae]
  - Cough [Recovered/Resolved with Sequelae]
  - Pulmonary fibrosis [Recovered/Resolved with Sequelae]
  - Fatigue [Recovered/Resolved with Sequelae]

NARRATIVE: CASE EVENT DATE: 201411
